FAERS Safety Report 7021655-1 (Version None)
Quarter: 2010Q3

REPORT INFORMATION
  Report Type: 
  Country: None (occurrence: None)
  Receive Date: 20100930
  Receipt Date: 20100412
  Transmission Date: 20110219
  Serious: Yes (Other)
  Sender: FDA-Public Use
  Company Number: US-ASTRAZENECA-2009UW19226

PATIENT
  Age: 17137 Day
  Sex: Female
  Weight: 95.7 kg

DRUGS (17)
  1. SEROQUEL [Suspect]
     Indication: SLEEP DISORDER
     Dosage: 25-400MG
     Route: 048
     Dates: start: 19980101
  2. SEROQUEL [Suspect]
     Indication: DEPRESSION
     Dosage: 25-400MG
     Route: 048
     Dates: start: 19980101
  3. RISPERDAL [Concomitant]
     Indication: PSYCHOTIC DISORDER
     Dates: start: 20040101
  4. RISPERDAL [Concomitant]
     Dates: start: 20000802
  5. THORAZINE [Concomitant]
  6. PAXIL [Concomitant]
     Indication: DEPRESSION
     Dates: start: 20040101
  7. PAXIL [Concomitant]
     Dates: start: 20000802
  8. TRAZODONE HCL [Concomitant]
     Indication: INSOMNIA
     Dates: start: 20040101
  9. TRAZODONE HCL [Concomitant]
     Dates: start: 20000802
  10. EFFEXOR [Concomitant]
     Dates: start: 20050101
  11. LAMICTAL [Concomitant]
     Dates: start: 20070101
  12. ZYPREXA [Concomitant]
     Indication: PSYCHOTIC DISORDER
     Dates: start: 20000802
  13. SYMBYAX [Concomitant]
  14. CELEBREX [Concomitant]
     Dates: start: 20040601
  15. AMBIEN [Concomitant]
     Dates: start: 20040603
  16. DIOVAN [Concomitant]
     Dates: start: 20060321
  17. PERCOCET [Concomitant]
     Dosage: 5/325
     Dates: start: 20070101

REACTIONS (3)
  - DIABETIC NEPHROPATHY [None]
  - DIABETIC NEUROPATHY [None]
  - TYPE 2 DIABETES MELLITUS [None]
